FAERS Safety Report 16349975 (Version 1)
Quarter: 2019Q2

REPORT INFORMATION
  Report Type: Spontaneous
  Country: SK (occurrence: SK)
  Receive Date: 20190523
  Receipt Date: 20190523
  Transmission Date: 20190711
  Serious: Yes (Other)
  Sender: FDA-Public Use
  Company Number: PHHY2019SK112252

PATIENT
  Age: 23 Year
  Sex: Male

DRUGS (5)
  1. BLEOMYCIN [Suspect]
     Active Substance: BLEOMYCIN SULFATE
     Indication: TESTICULAR GERM CELL TUMOUR
     Route: 062
  2. EVEROLIMUS. [Suspect]
     Active Substance: EVEROLIMUS
     Indication: TESTICULAR GERM CELL TUMOUR
     Dosage: 10 MG, QD
     Route: 065
  3. ETOPOSIDE. [Suspect]
     Active Substance: ETOPOSIDE
     Indication: TESTICULAR GERM CELL TUMOUR
     Route: 062
  4. CISPLATIN. [Suspect]
     Active Substance: CISPLATIN
     Indication: TESTICULAR GERM CELL TUMOUR
     Route: 062
  5. IFOSFAMIDE. [Suspect]
     Active Substance: IFOSFAMIDE
     Indication: TESTICULAR GERM CELL TUMOUR
     Route: 065

REACTIONS (9)
  - Metastases to lung [Recovering/Resolving]
  - Abdominal compartment syndrome [Unknown]
  - Testicular germ cell tumour [Recovering/Resolving]
  - Lymphadenopathy [Unknown]
  - Malignant neoplasm progression [Recovering/Resolving]
  - Product use in unapproved indication [Unknown]
  - Metastases to retroperitoneum [Recovering/Resolving]
  - Neoplasm progression [Recovering/Resolving]
  - Metastases to liver [Unknown]
